FAERS Safety Report 18757402 (Version 1)
Quarter: 2021Q1

REPORT INFORMATION
  Report Type: Spontaneous
  Country: FR (occurrence: FR)
  Receive Date: 20210119
  Receipt Date: 20210119
  Transmission Date: 20210419
  Serious: Yes (Other)
  Sender: FDA-Public Use
  Company Number: FR-TEVA-2021-FR-1869491

PATIENT
  Age: 36 Year
  Sex: Female
  Weight: 66 kg

DRUGS (2)
  1. AZITHROMYCINE [Concomitant]
     Active Substance: AZITHROMYCIN
     Indication: INFLUENZA LIKE ILLNESS
     Dosage: UNSPECIFIED
     Route: 048
  2. CIPROFLOXACINE [Suspect]
     Active Substance: CIPROFLOXACIN
     Indication: INFLUENZA LIKE ILLNESS
     Dosage: UNSPECIFIED
     Route: 048

REACTIONS (1)
  - Uveitis [Recovered/Resolved]

NARRATIVE: CASE EVENT DATE: 202011
